FAERS Safety Report 20059308 (Version 2)
Quarter: 2021Q4

REPORT INFORMATION
  Report Type: Spontaneous
  Country: BR (occurrence: BR)
  Receive Date: 20211111
  Receipt Date: 20211125
  Transmission Date: 20220303
  Serious: Yes (Hospitalization, Other)
  Sender: FDA-Public Use
  Company Number: BR-ASTELLAS-2021US041370

PATIENT
  Age: 47 Year
  Sex: Male

DRUGS (1)
  1. MICAFUNGIN [Suspect]
     Active Substance: MICAFUNGIN
     Indication: Fungal infection
     Dosage: 100MG F/A EV WITH DOSAGE OF 2F/A 1X A DAY, ONCE DAILY
     Route: 042
     Dates: start: 20210711, end: 20210713

REACTIONS (3)
  - Hyperaemia [Recovered/Resolved]
  - Nosocomial infection [Recovered/Resolved]
  - Klebsiella infection [Recovered/Resolved]

NARRATIVE: CASE EVENT DATE: 20210711
